FAERS Safety Report 6707586-2 (Version None)
Quarter: 2010Q2

REPORT INFORMATION
  Report Type: 
  Country: None (occurrence: None)
  Receive Date: 20100503
  Receipt Date: 20081107
  Transmission Date: 20101027
  Serious: Yes (Other)
  Sender: FDA-Public Use
  Company Number: FR-BAYER-200830343GPV

PATIENT
  Age: 24 Year
  Sex: Male

DRUGS (2)
  1. KOGENATE [Suspect]
     Indication: FACTOR VIII DEFICIENCY
     Route: 042
     Dates: start: 20081023, end: 20081023
  2. KOGENATE [Suspect]
     Route: 042
     Dates: start: 20081023, end: 20081023

REACTIONS (2)
  - LOSS OF CONSCIOUSNESS [None]
  - MALAISE [None]
